FAERS Safety Report 6248455-4 (Version None)
Quarter: 2009Q2

REPORT INFORMATION
  Report Type: 
  Country: None (occurrence: None)
  Receive Date: 20090629
  Receipt Date: 20090625
  Transmission Date: 20091009
  Serious: Yes (Death)
  Sender: FDA-Public Use
  Company Number: JP-JNJFOC-20090609051

PATIENT
  Sex: Male
  Weight: 40 kg

DRUGS (7)
  1. DUROTEP MT [Suspect]
     Route: 062
  2. DUROTEP MT [Suspect]
     Route: 062
  3. DUROTEP MT [Suspect]
     Route: 062
  4. DUROTEP MT [Suspect]
     Route: 062
  5. DUROTEP MT [Suspect]
     Route: 062
  6. DUROTEP MT [Suspect]
     Route: 062
  7. DUROTEP MT [Suspect]
     Indication: EMPHYSEMA
     Route: 062

REACTIONS (2)
  - DRUG PRESCRIBING ERROR [None]
  - GASTRIC CANCER [None]
